FAERS Safety Report 11364635 (Version 1)
Quarter: 2015Q3

REPORT INFORMATION
  Report Type: Spontaneous
  Country: US (occurrence: None)
  Receive Date: 20150810
  Receipt Date: 20150810
  Transmission Date: 20151125
  Serious: Yes (Disabling)
  Sender: FDA-Public Use
  Company Number: None

PATIENT
  Age: 85 Year
  Sex: Male
  Weight: 76.2 kg

DRUGS (6)
  1. ATENOLOL. [Concomitant]
     Active Substance: ATENOLOL
  2. FINASTERIDE. [Concomitant]
     Active Substance: FINASTERIDE
  3. METHYLPRED 4MG PAK PFIZ [Suspect]
     Active Substance: METHYLPREDNISOLONE
     Indication: INFLAMMATION
     Dosage: 6TABS,5TABS,4,3,3,1 ETC.
     Route: 048
     Dates: start: 20150701, end: 20150716
  4. PRILOSEC [Concomitant]
     Active Substance: OMEPRAZOLE MAGNESIUM
  5. LOSARTAN. [Concomitant]
     Active Substance: LOSARTAN
  6. HYTRIN [Concomitant]
     Active Substance: TERAZOSIN HYDROCHLORIDE

REACTIONS (7)
  - Hypoaesthesia [None]
  - Cellulitis [None]
  - Nerve injury [None]
  - Paraesthesia [None]
  - Peripheral swelling [None]
  - Pain in extremity [None]
  - Drug effect decreased [None]

NARRATIVE: CASE EVENT DATE: 20150720
